FAERS Safety Report 13653429 (Version 1)
Quarter: 2017Q2

REPORT INFORMATION
  Report Type: Spontaneous
  Country: US (occurrence: US)
  Receive Date: 20170614
  Receipt Date: 20170614
  Transmission Date: 20170830
  Serious: No
  Sender: FDA-Public Use
  Company Number: US-ROCHE-1346713

PATIENT
  Sex: Male
  Weight: 106.24 kg

DRUGS (8)
  1. NIFEDICAL XL [Concomitant]
     Active Substance: NIFEDIPINE
  2. XELODA [Suspect]
     Active Substance: CAPECITABINE
     Indication: RECTAL CANCER
     Route: 048
     Dates: start: 20131224, end: 20140227
  3. VITAMIN C [Concomitant]
     Active Substance: ASCORBIC ACID
  4. IBUPROFEN. [Concomitant]
     Active Substance: IBUPROFEN
  5. LISINOPRIL. [Concomitant]
     Active Substance: LISINOPRIL
  6. SIMCOR [Concomitant]
     Active Substance: NIACIN\SIMVASTATIN
  7. XELODA [Suspect]
     Active Substance: CAPECITABINE
     Dosage: BID ON DAYS 1-15 EVERY 21 DAYS
     Route: 048
     Dates: start: 20140207
  8. OMEPRAZOLE. [Concomitant]
     Active Substance: OMEPRAZOLE

REACTIONS (3)
  - Mass [Not Recovered/Not Resolved]
  - Skin fissures [Not Recovered/Not Resolved]
  - Dry skin [Not Recovered/Not Resolved]
